FAERS Safety Report 8317738-6 (Version None)
Quarter: 2012Q2

REPORT INFORMATION
  Report Type: 
  Country: None (occurrence: None)
  Receive Date: 20120427
  Receipt Date: 20120423
  Transmission Date: 20120825
  Serious: Yes (Other)
  Sender: FDA-Public Use
  Company Number: PHEH2012US008582

PATIENT
  Sex: Female

DRUGS (7)
  1. VICODIN [Concomitant]
     Dosage: UNK UKN, UNK
  2. DIOVAN [Suspect]
     Dosage: 0.5 DF (160MG), UNK
  3. PROPRANOLOL [Concomitant]
     Dosage: UNK UKN, BID
  4. DIOVAN [Suspect]
     Dosage: 80 MG, QD
  5. ESTROGEN NOS [Concomitant]
  6. MOTRIN [Concomitant]
     Dosage: UNK UKN, UNK
  7. FLEXIROL [Concomitant]
     Dosage: UNK UKN, UNK

REACTIONS (2)
  - WRONG TECHNIQUE IN DRUG USAGE PROCESS [None]
  - COMPLEX REGIONAL PAIN SYNDROME [None]
